FAERS Safety Report 9593861 (Version 1)
Quarter: 2013Q4

REPORT INFORMATION
  Report Type: Spontaneous
  Country: US (occurrence: None)
  Receive Date: 20131002
  Receipt Date: 20131002
  Transmission Date: 20140711
  Serious: Yes (Hospitalization)
  Sender: FDA-Public Use
  Company Number: ADR-2013239157

PATIENT
  Age: 50 Year
  Sex: Female
  Weight: 80.74 kg

DRUGS (5)
  1. AMLODIPINE BESYLATE [Suspect]
     Indication: HYPERTENSION
     Route: 048
     Dates: start: 201307, end: 20130828
  2. SPIRIVA [Concomitant]
  3. ADVAIR [Concomitant]
  4. NEXIUM [Concomitant]
  5. SIMVASTATIN [Concomitant]

REACTIONS (4)
  - Rash [None]
  - Local swelling [None]
  - Dyspnoea [None]
  - Dysphagia [None]
